FAERS Safety Report 9174606 (Version 1)
Quarter: 2013Q1

REPORT INFORMATION
  Report Type: Spontaneous
  Country: IT (occurrence: IT)
  Receive Date: 20130320
  Receipt Date: 20130320
  Transmission Date: 20140127
  Serious: Yes (Other)
  Sender: FDA-Public Use
  Company Number: IT-PFIZER INC-2013091179

PATIENT
  Age: 65 Year
  Sex: Female

DRUGS (1)
  1. MEDROL [Suspect]
     Indication: PROPHYLAXIS
     Dosage: 16 MG, TOTAL DOSE
     Dates: start: 20121202, end: 20121202

REACTIONS (4)
  - Throat tightness [Recovering/Resolving]
  - Dyspnoea [Recovering/Resolving]
  - Tachycardia [Recovering/Resolving]
  - Dysphonia [Recovering/Resolving]
